FAERS Safety Report 13537330 (Version 1)
Quarter: 2017Q2

REPORT INFORMATION
  Report Type: Spontaneous
  Country: IT (occurrence: IT)
  Receive Date: 20170511
  Receipt Date: 20170511
  Transmission Date: 20170830
  Serious: Yes (Other)
  Sender: FDA-Public Use
  Company Number: IT-PFIZER INC-2017200428

PATIENT
  Age: 31 Year
  Sex: Female

DRUGS (1)
  1. DOSTINEX [Suspect]
     Active Substance: CABERGOLINE
     Indication: LACTATION INHIBITION THERAPY
     Dosage: 0.5 DF, 2X/DAY
     Dates: start: 20170405, end: 2017

REACTIONS (4)
  - Tremor [Recovered/Resolved]
  - Syncope [Recovered/Resolved]
  - Epilepsy [Recovered/Resolved]
  - Lip injury [Unknown]

NARRATIVE: CASE EVENT DATE: 20170406
